FAERS Safety Report 8007266-X (Version None)
Quarter: 2011Q4

REPORT INFORMATION
  Report Type: 
  Country: None (occurrence: None)
  Receive Date: 20111123
  Receipt Date: 20110901
  Transmission Date: 20120403
  Serious: No
  Sender: FDA-Public Use
  Company Number: 330864

PATIENT
  Age: 63 Year
  Sex: Female

DRUGS (2)
  1. METFORMIN HCL [Suspect]
     Indication: TYPE 2 DIABETES MELLITUS
     Dosage: ORAL
     Route: 048
  2. VICTOZA [Suspect]
     Indication: TYPE 2 DIABETES MELLITUS
     Dosage: 1.8 MG, QD, SUBCUTANEOUS 1.2 MG, QD, SUBCUTANEOUS
     Route: 058
     Dates: start: 20110405

REACTIONS (2)
  - ALOPECIA [None]
  - DISORIENTATION [None]
